FAERS Safety Report 4984392-0 (Version None)
Quarter: 2006Q2

REPORT INFORMATION
  Report Type: 
  Country: None (occurrence: None)
  Receive Date: 20060420
  Receipt Date: 20060410
  Transmission Date: 20061013
  Serious: Yes (Death, Hospitalization, Other)
  Sender: FDA-Public Use
  Company Number: 200610073BFR

PATIENT
  Age: 65 Year
  Sex: Male
  Weight: 87 kg

DRUGS (12)
  1. SORAFENIB [Suspect]
     Indication: METASTATIC RENAL CELL CARCINOMA
     Dosage: 400 MG, BID, ORAL
     Route: 048
     Dates: start: 20031202, end: 20050612
  2. SORAFENIB [Suspect]
     Indication: METASTATIC RENAL CELL CARCINOMA
     Dosage: 400 MG, BID, ORAL
     Route: 048
     Dates: start: 20050927, end: 20051121
  3. SORAFENIB [Suspect]
     Indication: METASTATIC RENAL CELL CARCINOMA
     Dosage: 400 MG, BID, ORAL
     Route: 048
     Dates: start: 20051121, end: 20060104
  4. SORAFENIB [Suspect]
     Indication: METASTATIC RENAL CELL CARCINOMA
     Dosage: 400 MG, BID, ORAL
     Route: 048
     Dates: start: 20050613
  5. SORAFENIB [Suspect]
  6. ZOCOR [Concomitant]
  7. DEXERYL   PIERRE FABRE [Concomitant]
  8. IMODIUM [Concomitant]
  9. BIAFINE [Concomitant]
  10. TIORFAN [Concomitant]
  11. TRIFLUCAN [Concomitant]
  12. CIFLOX [Concomitant]

REACTIONS (15)
  - ABDOMINAL DISTENSION [None]
  - ABDOMINAL PAIN [None]
  - ABDOMINAL PAIN UPPER [None]
  - ASTHENIA [None]
  - BLOOD LACTATE DEHYDROGENASE INCREASED [None]
  - DRUG INEFFECTIVE [None]
  - GENERAL PHYSICAL HEALTH DETERIORATION [None]
  - HEPATIC PAIN [None]
  - HEPATOMEGALY [None]
  - JAUNDICE [None]
  - LIVER DISORDER [None]
  - MALIGNANT NEOPLASM PROGRESSION [None]
  - OEDEMA PERIPHERAL [None]
  - SERUM FERRITIN INCREASED [None]
  - THROMBOCYTOPENIA [None]
